FAERS Safety Report 5565266-3 (Version None)
Quarter: 2007Q4

REPORT INFORMATION
  Report Type: 
  Country: None (occurrence: None)
  Receive Date: 20071218
  Receipt Date: 20071210
  Transmission Date: 20080405
  Serious: Yes (Other)
  Sender: FDA-Public Use
  Company Number: US-ASTRAZENECA-2007UW22545

PATIENT
  Age: 2798 Day
  Sex: Female
  Weight: 31.2 kg

DRUGS (8)
  1. SEROQUEL [Suspect]
     Indication: ABNORMAL BEHAVIOUR
     Dosage: 25 MG INCREASED TO 200 MG HS
     Route: 048
     Dates: start: 20070511, end: 20070524
  2. SEROQUEL [Suspect]
     Dosage: 50 MG QAM AND 200 MG HS
     Route: 048
     Dates: start: 20070524, end: 20070927
  3. CONCERTA [Suspect]
     Indication: ABNORMAL BEHAVIOUR
     Route: 048
     Dates: start: 20070709, end: 20070827
  4. CONCERTA [Suspect]
     Route: 048
     Dates: start: 20070827, end: 20070927
  5. METADATE CD [Concomitant]
     Indication: ATTENTION DEFICIT/HYPERACTIVITY DISORDER
     Dates: start: 20070413, end: 20070427
  6. METADATE CD [Concomitant]
     Indication: OPPOSITIONAL DEFIANT DISORDER
     Dates: start: 20070413, end: 20070427
  7. METADATE CD [Concomitant]
     Indication: CONDUCT DISORDER
     Dates: start: 20070413, end: 20070427
  8. DEPAKOTE ER [Concomitant]
     Dosage: 500 MG +250 MG
     Dates: start: 20070427, end: 20070511

REACTIONS (5)
  - AORTIC VALVE INCOMPETENCE [None]
  - BLOOD PRESSURE INCREASED [None]
  - MITRAL VALVE INCOMPETENCE [None]
  - SINUS ARRHYTHMIA [None]
  - VENTRICULAR HYPERTROPHY [None]
